FAERS Safety Report 12495614 (Version 5)
Quarter: 2016Q3

REPORT INFORMATION
  Report Type: Report from Study
  Country: US (occurrence: US)
  Receive Date: 20160624
  Receipt Date: 20160725
  Transmission Date: 20161109
  Serious: Yes (Other)
  Sender: FDA-Public Use
  Company Number: US-PFIZER INC-2016308498

PATIENT
  Age: 42 Year
  Sex: Female

DRUGS (2)
  1. MOTRIN [Suspect]
     Active Substance: IBUPROFEN
     Indication: CAUDA EQUINA SYNDROME
     Dosage: 800 MG, EVERY 6 HRS
     Route: 048
     Dates: end: 20140601
  2. NAPROSYN [Suspect]
     Active Substance: NAPROXEN
     Indication: CAUDA EQUINA SYNDROME
     Dosage: 500 MG, 2X/DAY
     Route: 048
     Dates: end: 20140601

REACTIONS (1)
  - Gastric ulcer [Recovered/Resolved]

NARRATIVE: CASE EVENT DATE: 20140601
